FAERS Safety Report 5108017-9 (Version None)
Quarter: 2006Q3

REPORT INFORMATION
  Report Type: 
  Country: None (occurrence: None)
  Receive Date: 20060919
  Receipt Date: 20060908
  Transmission Date: 20061208
  Serious: Yes (Other)
  Sender: FDA-Public Use
  Company Number: PHHO2006MX15340

PATIENT
  Age: 45 Year
  Sex: Female

DRUGS (1)
  1. ZELMAC / HTF 919A [Suspect]
     Dosage: 6 MG, BID
     Route: 048

REACTIONS (2)
  - ABDOMINAL PAIN [None]
  - DIZZINESS [None]
